FAERS Safety Report 5655655-0 (Version None)
Quarter: 2008Q1

REPORT INFORMATION
  Report Type: 
  Country: None (occurrence: None)
  Receive Date: 20080212
  Receipt Date: 20071017
  Transmission Date: 20080703
  Serious: Yes (Other)
  Sender: FDA-Public Use
  Company Number: MC200700668

PATIENT

DRUGS (2)
  1. ANGIOMAX [Suspect]
     Indication: CORONARY ARTERY BYPASS
  2. APROTININ [Concomitant]

REACTIONS (1)
  - THROMBOSIS [None]
